FAERS Safety Report 8859160 (Version 1)
Quarter: 2012Q4

REPORT INFORMATION
  Report Type: 
  Country: ZA (occurrence: ZA)
  Receive Date: 20121024
  Receipt Date: 20121024
  Transmission Date: 20130627
  Serious: Yes (Death)
  Sender: FDA-Public Use
  Company Number: ZA-CELGENEUS-143-20785-12102333

PATIENT
  Age: 10 Year
  Sex: Female

DRUGS (5)
  1. THALIDOMIDE [Suspect]
     Indication: TUBERCULOSIS OF CENTRAL NERVOUS SYSTEM
     Dosage: 2 milligram/kilogram
     Route: 048
  2. DEXAMETHASONE [Concomitant]
     Indication: TUBERCULOSIS OF CENTRAL NERVOUS SYSTEM
     Route: 041
  3. STAVUDINE [Concomitant]
     Indication: HIV DISEASE
     Route: 065
  4. LAMIVUDINE [Concomitant]
     Indication: HIV DISEASE
     Route: 065
  5. EFAVIRENZ [Concomitant]
     Indication: HIV DISEASE
     Route: 065

REACTIONS (2)
  - Death [Fatal]
  - Tuberculosis of central nervous system [Unknown]
